FAERS Safety Report 5220747-7 (Version None)
Quarter: 2007Q1

REPORT INFORMATION
  Report Type: 
  Country: None (occurrence: None)
  Receive Date: 20070125
  Receipt Date: 20070125
  Transmission Date: 20070707
  Serious: Yes (Other)
  Sender: FDA-Public Use
  Company Number: None

PATIENT
  Age: 72 Year
  Sex: Male
  Weight: 91 kg

DRUGS (1)
  1. INVANZ [Suspect]
     Indication: ARTHRITIS INFECTIVE
     Dosage: 1 GM Q 24 HR IV
     Route: 042
     Dates: start: 20070107, end: 20070122

REACTIONS (2)
  - RASH PRURITIC [None]
  - URTICARIA [None]
